FAERS Safety Report 17194216 (Version 4)
Quarter: 2020Q1

REPORT INFORMATION
  Report Type: Report from Study
  Country: US (occurrence: US)
  Receive Date: 20191224
  Receipt Date: 20200206
  Transmission Date: 20200409
  Serious: Yes (Hospitalization, Other)
  Sender: FDA-Public Use
  Company Number: US-ROCHE-2499754

PATIENT
  Age: 68 Year
  Sex: Male
  Weight: 77.18 kg

DRUGS (1)
  1. OCREVUS [Suspect]
     Active Substance: OCRELIZUMAB
     Indication: SECONDARY PROGRESSIVE MULTIPLE SCLEROSIS
     Dosage: ONGOING: YES?NEXT DOSE RECEIVED ON 12/MAY/2019, 30/SEP/2019.
     Route: 042
     Dates: start: 20190427

REACTIONS (7)
  - JC polyomavirus test positive [Not Recovered/Not Resolved]
  - Fall [Unknown]
  - Pain in extremity [Recovered/Resolved]
  - Fatigue [Not Recovered/Not Resolved]
  - Back injury [Recovered/Resolved]
  - Asthenia [Recovering/Resolving]
  - Multiple sclerosis relapse [Recovered/Resolved]

NARRATIVE: CASE EVENT DATE: 20191023
